FAERS Safety Report 5089632-8 (Version None)
Quarter: 2006Q3

REPORT INFORMATION
  Report Type: 
  Country: None (occurrence: None)
  Receive Date: 20060822
  Receipt Date: 20060804
  Transmission Date: 20061208
  Serious: Yes (Other)
  Sender: FDA-Public Use
  Company Number: US200608003130

PATIENT

DRUGS (3)
  1. HUMULIN R [Suspect]
     Dosage: TRANSPLACENTAL
     Route: 064
  2. HUMULIN N [Suspect]
     Dosage: TRANSPLACENTAL
     Route: 064
  3. ANTI-HYPERENTIVE AGENT (ANTI-HYPERSENTIVE AGENT) [Concomitant]

REACTIONS (3)
  - DRUG EXPOSURE DURING PREGNANCY [None]
  - DRUG EXPOSURE VIA BREAST MILK [None]
  - PREMATURE BABY [None]
